FAERS Safety Report 7137694-6 (Version None)
Quarter: 2010Q4

REPORT INFORMATION
  Report Type: 
  Country: None (occurrence: None)
  Receive Date: 20101119
  Receipt Date: 20101105
  Transmission Date: 20110411
  Serious: Yes (Hospitalization)
  Sender: FDA-Public Use
  Company Number: TPA2010A05709

PATIENT
  Age: 61 Year
  Sex: Female
  Weight: 56.6996 kg

DRUGS (8)
  1. DEXILANT [Suspect]
     Indication: GASTROOESOPHAGEAL REFLUX DISEASE
     Dosage: 60 MG, 1 IN 1 D, PER ORAL
     Route: 048
     Dates: start: 20100101
  2. LISINOPRIL [Suspect]
     Indication: HYPERTENSION
     Dates: end: 20101101
  3. LISINOPRIL [Suspect]
     Indication: RESTLESS LEGS SYNDROME
     Dates: end: 20101101
  4. TEGRETOL [Concomitant]
  5. ATENOLOL [Concomitant]
  6. AMITIZA (ALL OTHER THERAPEUTIC PRODUCTS) [Concomitant]
  7. CLONAZEPAM [Concomitant]
  8. ZEBUTAL 500/40/5 (CAFFEUNEM BUTALBITAL, PARACETAMOL) [Concomitant]

REACTIONS (14)
  - ABDOMINAL PAIN UPPER [None]
  - ASTHENIA [None]
  - BLOOD SODIUM DECREASED [None]
  - EYE ROLLING [None]
  - FEELING HOT [None]
  - HAEMATOCHEZIA [None]
  - HYPERHIDROSIS [None]
  - HYPOTENSION [None]
  - LOSS OF CONSCIOUSNESS [None]
  - LOWER RESPIRATORY TRACT INFECTION [None]
  - MALAISE [None]
  - OROPHARYNGEAL PAIN [None]
  - SINUSITIS [None]
  - WHITE BLOOD CELL COUNT INCREASED [None]
